FAERS Safety Report 21204094 (Version 1)
Quarter: 2022Q3

REPORT INFORMATION
  Report Type: Spontaneous
  Country: TH (occurrence: TH)
  Receive Date: 20220812
  Receipt Date: 20220812
  Transmission Date: 20221027
  Serious: Yes (Hospitalization)
  Sender: FDA-Public Use
  Company Number: TH-STRIDES ARCOLAB LIMITED-2022SP010233

PATIENT
  Age: 46 Year
  Sex: Female

DRUGS (15)
  1. PREDNISOLONE [Suspect]
     Active Substance: PREDNISOLONE
     Indication: Lupus nephritis
     Dosage: UNK, AFTER A DIAGNOSIS OF LUPUS NEPHRITIS
     Route: 065
  2. PREDNISOLONE [Suspect]
     Active Substance: PREDNISOLONE
     Indication: Immune tolerance induction
     Dosage: 20 MG/DAY FOR 4 WEEKS BEFORE SURGERY
     Route: 065
  3. TACROLIMUS [Suspect]
     Active Substance: TACROLIMUS
     Indication: Immune tolerance induction
     Dosage: 11 MILLIGRAM, PER DAY
     Route: 065
  4. MYCOPHENOLATE MOFETIL [Suspect]
     Active Substance: MYCOPHENOLATE MOFETIL
     Indication: Immune tolerance induction
     Dosage: 1500 MILLIGRAM, PER DAY
     Route: 065
  5. CYCLOPHOSPHAMIDE [Suspect]
     Active Substance: CYCLOPHOSPHAMIDE
     Indication: Lupus nephritis
     Dosage: UNK
     Route: 065
  6. MYCOPHENOLIC ACID [Suspect]
     Active Substance: MYCOPHENOLIC ACID
     Indication: Lupus nephritis
     Dosage: UNK
     Route: 065
  7. ERYTHROPOIETIN [Concomitant]
     Active Substance: ERYTHROPOIETIN
     Indication: Product used for unknown indication
     Dosage: UNK
     Route: 065
  8. METHOXY POLYETHYLENE GLYCOL-EPOETIN BETA [Concomitant]
     Active Substance: METHOXY POLYETHYLENE GLYCOL-EPOETIN BETA
     Indication: Product used for unknown indication
     Dosage: 75MCG
     Route: 058
     Dates: start: 201902
  9. METHOXY POLYETHYLENE GLYCOL-EPOETIN BETA [Concomitant]
     Active Substance: METHOXY POLYETHYLENE GLYCOL-EPOETIN BETA
     Dosage: 75MCG
     Route: 058
     Dates: start: 201908
  10. METHOXY POLYETHYLENE GLYCOL-EPOETIN BETA [Concomitant]
     Active Substance: METHOXY POLYETHYLENE GLYCOL-EPOETIN BETA
     Dosage: 75MCG IN
     Route: 058
     Dates: start: 202001
  11. METHOXY POLYETHYLENE GLYCOL-EPOETIN BETA [Concomitant]
     Active Substance: METHOXY POLYETHYLENE GLYCOL-EPOETIN BETA
     Dosage: 75MCG
     Route: 058
     Dates: start: 202002
  12. METHOXY POLYETHYLENE GLYCOL-EPOETIN BETA [Concomitant]
     Active Substance: METHOXY POLYETHYLENE GLYCOL-EPOETIN BETA
     Dosage: UNK, EVERY 4 WEEKS WITH INCREASED DOSE TITRATION
     Route: 058
  13. EPOETIN ZETA [Concomitant]
     Active Substance: ERYTHROPOIETIN
     Indication: Product used for unknown indication
     Dosage: 10000 UNITS 3 TIMES PER MONTH
     Route: 058
     Dates: start: 202007, end: 202010
  14. RITUXIMAB [Concomitant]
     Active Substance: RITUXIMAB
     Indication: Immune tolerance induction
     Dosage: 375 MILLIGRAM/SQ. METER
     Route: 065
  15. THYMOCYTE IMMUNE GLOBULIN NOS [Concomitant]
     Active Substance: THYMOCYTE IMMUNE GLOBULIN NOS
     Indication: Immune tolerance induction
     Dosage: UNK
     Route: 065

REACTIONS (3)
  - Hypophosphataemia [Recovered/Resolved]
  - Drug ineffective [Unknown]
  - Device related infection [Unknown]
